FAERS Safety Report 7845542-1 (Version None)
Quarter: 2011Q4

REPORT INFORMATION
  Report Type: 
  Country: None (occurrence: None)
  Receive Date: 20111025
  Receipt Date: 20111019
  Transmission Date: 20120403
  Serious: Yes (Life-Threatening, Hospitalization, Other)
  Sender: FDA-Public Use
  Company Number: US-MPIJNJ-2011-05008

PATIENT
  Age: 73 Year
  Sex: Female
  Weight: 60 kg

DRUGS (15)
  1. CALCITRIOL [Concomitant]
     Indication: PRODUCT USED FOR UNKNOWN INDICATION
  2. MEGACE [Concomitant]
     Indication: PRODUCT USED FOR UNKNOWN INDICATION
  3. AMLODIPINE [Concomitant]
     Indication: PRODUCT USED FOR UNKNOWN INDICATION
  4. ASPIRIN [Concomitant]
     Indication: PRODUCT USED FOR UNKNOWN INDICATION
  5. MAGNESIUM OXIDE [Concomitant]
     Indication: PRODUCT USED FOR UNKNOWN INDICATION
  6. OXYCODONE HCL [Concomitant]
     Indication: PRODUCT USED FOR UNKNOWN INDICATION
  7. PROTONIX [Concomitant]
     Indication: PRODUCT USED FOR UNKNOWN INDICATION
  8. VALTREX [Concomitant]
     Indication: PRODUCT USED FOR UNKNOWN INDICATION
  9. RENAGEL [Concomitant]
     Indication: PRODUCT USED FOR UNKNOWN INDICATION
  10. VELCADE [Suspect]
     Indication: MULTIPLE MYELOMA
     Dosage: 1.3 MG/M2, CYCLIC
     Route: 042
  11. PROZAC [Concomitant]
     Indication: PRODUCT USED FOR UNKNOWN INDICATION
  12. ZOFRAN [Concomitant]
     Indication: PRODUCT USED FOR UNKNOWN INDICATION
  13. NYSTATIN [Concomitant]
     Indication: PRODUCT USED FOR UNKNOWN INDICATION
  14. LOPERAMIDE HCL [Concomitant]
     Indication: PRODUCT USED FOR UNKNOWN INDICATION
  15. SENOKOT [Concomitant]
     Indication: PRODUCT USED FOR UNKNOWN INDICATION

REACTIONS (7)
  - HYPOTENSION [None]
  - METABOLIC ENCEPHALOPATHY [None]
  - HALLUCINATION [None]
  - ELECTROLYTE IMBALANCE [None]
  - DEHYDRATION [None]
  - DIARRHOEA [None]
  - FATIGUE [None]
